FAERS Safety Report 4353444-0 (Version None)
Quarter: 2004Q2

REPORT INFORMATION
  Report Type: 
  Country: None (occurrence: None)
  Receive Date: 20040505
  Receipt Date: 20040505
  Transmission Date: 20050107
  Serious: Yes (Life-Threatening, Hospitalization)
  Sender: FDA-Public Use
  Company Number: None

PATIENT
  Age: 59 Year
  Sex: Male
  Weight: 83.7 kg

DRUGS (6)
  1. PIROXICAM [Suspect]
     Indication: PAIN
     Dosage: 20 MG. 20 MG  QD ORAL
     Route: 048
     Dates: end: 20031126
  2. LISINOPRIL [Concomitant]
  3. PIROXICAM [Concomitant]
  4. TESTOSTERONE ENTH [Concomitant]
  5. CLOPIDOGREL BISULFATE [Concomitant]
  6. SIMVASTATIN [Concomitant]

REACTIONS (1)
  - GASTROINTESTINAL HAEMORRHAGE [None]
